FAERS Safety Report 9034325 (Version 1)
Quarter: 2013Q1

REPORT INFORMATION
  Report Type: Spontaneous
  Country: US (occurrence: None)
  Receive Date: 20130115
  Receipt Date: 20130115
  Transmission Date: 20140127
  Serious: Yes (Other)
  Sender: FDA-Public Use
  Company Number: B0858427A

PATIENT
  Age: 52 Year
  Sex: Male

DRUGS (4)
  1. FLUCONAZOLE [Suspect]
     Indication: ORAL CANDIDIASIS
     Dosage: DAY /PER DAY
  2. RITONAVIR [Suspect]
     Indication: HIV INFECTION
  3. FLUTICASONE PROPIONATE [Suspect]
     Indication: PRODUCT USED FOR UNKNOWN INDICATION
     Dosage: INTRAHEATIC
  4. FLUTICASONE PROPIONATE [Suspect]
     Indication: WHEEZING
     Dosage: .05% DOSE?NASAL SPRAY
     Route: 055

REACTIONS (11)
  - Cushing^s syndrome [None]
  - Dyspnoea [None]
  - Nasal congestion [None]
  - Oropharyngeal candidiasis [None]
  - Blood glucose increased [None]
  - Secondary adrenocortical insufficiency [None]
  - Immunosuppression [None]
  - Muscular weakness [None]
  - Muscle spasms [None]
  - Dysphonia [None]
  - Odynophagia [None]
